FAERS Safety Report 22709933 (Version 3)
Quarter: 2024Q2

REPORT INFORMATION
  Report Type: Spontaneous
  Country: US (occurrence: US)
  Receive Date: 20230717
  Receipt Date: 20240502
  Transmission Date: 20240715
  Serious: Yes (Hospitalization, Other)
  Sender: FDA-Public Use
  Company Number: US-ABBVIE-5328374

PATIENT
  Sex: Male

DRUGS (2)
  1. LUPRON DEPOT [Suspect]
     Active Substance: LEUPROLIDE ACETATE
     Indication: Prostate cancer
     Route: 030
     Dates: start: 2021, end: 2021
  2. CASODEX [Suspect]
     Active Substance: BICALUTAMIDE
     Indication: Blood testosterone decreased
     Route: 065

REACTIONS (6)
  - Myelodysplastic syndrome [Unknown]
  - Nausea [Unknown]
  - Blood testosterone decreased [Unknown]
  - Haemoglobin abnormal [Unknown]
  - Gastrointestinal haemorrhage [Unknown]
  - Hypophagia [Unknown]
